FAERS Safety Report 20914501 (Version 1)
Quarter: 2022Q2

REPORT INFORMATION
  Report Type: Spontaneous
  Country: US (occurrence: US)
  Receive Date: 20220604
  Receipt Date: 20220604
  Transmission Date: 20220721
  Serious: No
  Sender: FDA-Public Use
  Company Number: US-SA-SAC20220523001062

PATIENT
  Sex: Male

DRUGS (2)
  1. DUPIXENT [Suspect]
     Active Substance: DUPILUMAB
     Indication: Nasal polyps
     Dosage: 300 MG, QOW
     Route: 058
     Dates: start: 201912
  2. COVID-19 VACCINE [Concomitant]
     Indication: Immunisation

REACTIONS (5)
  - Cough [Unknown]
  - Rhinorrhoea [Unknown]
  - Herpes zoster [Unknown]
  - Hypersensitivity [Unknown]
  - Product use in unapproved indication [Unknown]
